FAERS Safety Report 21416895 (Version 2)
Quarter: 2022Q4

REPORT INFORMATION
  Report Type: Report from Study
  Country: BD (occurrence: BD)
  Receive Date: 20221006
  Receipt Date: 20221012
  Transmission Date: 20230112
  Serious: Yes (Death, Hospitalization)
  Sender: FDA-Public Use
  Company Number: BD-NOVARTISPH-NVSC2022BD225846

PATIENT
  Age: 42 Year
  Sex: Female
  Weight: 40 kg

DRUGS (1)
  1. ZOMETA [Suspect]
     Active Substance: ZOLEDRONIC ACID
     Indication: Neoplasm malignant
     Dosage: UNK
     Route: 065
     Dates: start: 202208

REACTIONS (2)
  - Neoplasm malignant [Fatal]
  - Malignant neoplasm progression [Fatal]
